FAERS Safety Report 15075274 (Version 1)
Quarter: 2018Q2

REPORT INFORMATION
  Report Type: Spontaneous
  Country: US (occurrence: US)
  Receive Date: 20180627
  Receipt Date: 20180627
  Transmission Date: 20180711
  Serious: Yes (Other)
  Sender: FDA-Public Use
  Company Number: US-SAOL THERAPEUTICS-2017SAO03414

PATIENT
  Age: 60 Year
  Sex: Male
  Weight: 88.44 kg

DRUGS (1)
  1. BACLOFEN. [Suspect]
     Active Substance: BACLOFEN
     Indication: MUSCLE SPASTICITY
     Dosage: 530.1 ?G, \DAY
     Route: 037

REACTIONS (4)
  - Device extrusion [Recovered/Resolved]
  - Implant site erosion [Unknown]
  - Medical device site warmth [Unknown]
  - Unevaluable event [Unknown]

NARRATIVE: CASE EVENT DATE: 201707
